FAERS Safety Report 22837050 (Version 3)
Quarter: 2024Q3

REPORT INFORMATION
  Report Type: Spontaneous
  Country: GB (occurrence: GB)
  Receive Date: 20230818
  Receipt Date: 20240710
  Transmission Date: 20241017
  Serious: Yes (Hospitalization, Other)
  Sender: AUROBINDO
  Company Number: GB-MYLANLABS-2023M1078418

PATIENT
  Age: 38 Year
  Sex: Male

DRUGS (70)
  1. AMISULPRIDE [Suspect]
     Active Substance: AMISULPRIDE
     Indication: Affective disorder
     Dosage: 100MG IN THE MORNING, 400MG AT NIGHT START DATE: JUL-2016; ;
     Route: 050
     Dates: start: 201607
  2. AMISULPRIDE [Suspect]
     Active Substance: AMISULPRIDE
     Dosage: DAILY (START DATE: NOV-2004); ;
     Route: 050
     Dates: start: 200411
  3. AMISULPRIDE [Suspect]
     Active Substance: AMISULPRIDE
     Dosage: 200 MILLIGRAM, QD (200MG DAILY START DATE: JAN-2003)
     Route: 050
     Dates: start: 200301
  4. AMISULPRIDE [Suspect]
     Active Substance: AMISULPRIDE
     Dosage: 50 MILLIGRAM, BID (50MG TWICE DAILY START DATE:-2013)
     Route: 050
     Dates: start: 2013
  5. AMISULPRIDE [Suspect]
     Active Substance: AMISULPRIDE
     Dosage: 200MG IN THE MORNING, 600MG AT NIGHT START DATE: JUN-2016; ;
     Route: 050
     Dates: start: 201606
  6. AMISULPRIDE [Suspect]
     Active Substance: AMISULPRIDE
     Dosage: UNKNOWN DOSE IN THE MORNING, 100MG IN THE EVENING START DATE: NOV-2003; ;
     Route: 050
     Dates: start: 200311
  7. AMISULPRIDE [Suspect]
     Active Substance: AMISULPRIDE
     Dosage: 100 MILLIGRAM, QD (100MG DAILY START DATE: JUL-2004)
     Route: 050
     Dates: start: 200407
  8. AMISULPRIDE [Suspect]
     Active Substance: AMISULPRIDE
     Dosage: 200MG TWICE DAILY, 600MG AT NIGHT START DATE: MAY-2016; ;
     Route: 050
     Dates: start: 201605
  9. AMISULPRIDE [Suspect]
     Active Substance: AMISULPRIDE
     Dosage: UNK (START DATE: JAN-2022; ;
     Route: 050
     Dates: start: 202201
  10. AMISULPRIDE [Suspect]
     Active Substance: AMISULPRIDE
     Dosage: 200 MILLIGRAM, BID (200MG TWICE DAILY START DATE: SEP-2015)
     Route: 050
     Dates: start: 201509
  11. AMISULPRIDE [Suspect]
     Active Substance: AMISULPRIDE
     Dosage: 50 MILLIGRAM, BID (50MG TWICE DAILY START DATE: JUL-2014)
     Route: 065
     Dates: start: 201407
  12. AMISULPRIDE [Suspect]
     Active Substance: AMISULPRIDE
     Dosage: 100 MILLIGRAM, QD (100MG DAILY START DATE: JUL-2003)
     Route: 050
     Dates: start: 200307
  13. AMISULPRIDE [Suspect]
     Active Substance: AMISULPRIDE
     Dosage: 50 MILLIGRAM, QD (50MG DAILY START DATE: MAY-2005)
     Route: 050
     Dates: start: 200505
  14. CITALOPRAM [Suspect]
     Active Substance: CITALOPRAM\CITALOPRAM HYDROBROMIDE
     Indication: Depressed mood
     Dosage: 20 MILLIGRAM, QD (20MG DAILY START DATE: JUL-2004)
     Route: 065
     Dates: start: 200407
  15. CITALOPRAM [Suspect]
     Active Substance: CITALOPRAM\CITALOPRAM HYDROBROMIDE
     Dosage: 20 MILLIGRAM, QD (20MG DAILY START DATE: MAY-2005)
     Route: 065
     Dates: start: 200505
  16. CITALOPRAM [Suspect]
     Active Substance: CITALOPRAM\CITALOPRAM HYDROBROMIDE
     Dosage: 30 MILLIGRAM, QD (30MG DAILY START DATE: JUL-2014)
     Route: 065
     Dates: start: 201407
  17. CITALOPRAM [Suspect]
     Active Substance: CITALOPRAM\CITALOPRAM HYDROBROMIDE
     Dosage: 20 MILLIGRAM, QD (20MG DAILY START DATE: JAN-2003)
     Route: 065
     Dates: start: 200301
  18. CITALOPRAM [Suspect]
     Active Substance: CITALOPRAM\CITALOPRAM HYDROBROMIDE
     Dosage: 20 MILLIGRAM, QD (20MG DAILY START DATE: NOV-2004)
     Route: 065
     Dates: start: 200411
  19. CITALOPRAM [Suspect]
     Active Substance: CITALOPRAM\CITALOPRAM HYDROBROMIDE
     Dosage: UNK (START DATE: 2013)
     Route: 065
     Dates: start: 2013
  20. CITALOPRAM [Suspect]
     Active Substance: CITALOPRAM\CITALOPRAM HYDROBROMIDE
     Dosage: 20 MILLIGRAM, QD (20MG DAILY START DATE: NOV-2003)
     Route: 065
     Dates: start: 200311
  21. RISPERIDONE [Suspect]
     Active Substance: RISPERIDONE
     Indication: Product used for unknown indication
     Dosage: UNK (START DATE: FEB-2013)
     Route: 050
     Dates: start: 201302
  22. RISPERIDONE [Suspect]
     Active Substance: RISPERIDONE
     Dosage: UNK
     Route: 065
     Dates: start: 200210
  23. CARIPRAZINE [Suspect]
     Active Substance: CARIPRAZINE
     Indication: Product used for unknown indication
     Dosage: 6 MILLIGRAM, QD (6MG DAILY START DATE: DEC-2022)
     Route: 065
     Dates: start: 202212
  24. CARIPRAZINE [Suspect]
     Active Substance: CARIPRAZINE
     Dosage: 6 MILLIGRAM, QD (6MG DAILY START DATE: MAR-2023)
     Route: 065
     Dates: start: 202303
  25. CARIPRAZINE [Suspect]
     Active Substance: CARIPRAZINE
     Dosage: 3 MILLIGRAM, QD (3MG DAILY START DATE: AUG-2022)
     Route: 050
     Dates: start: 202208
  26. CLOZARIL [Suspect]
     Active Substance: CLOZAPINE
     Indication: Schizophrenia
     Dosage: 200MG IN THE MORNING, 300MG AT NIGHT START DATE:-MAY-2016
     Route: 065
     Dates: start: 201605
  27. CLOZARIL [Suspect]
     Active Substance: CLOZAPINE
     Indication: Schizoaffective disorder
     Dosage: 200MG IN THE MORNING, 300MG AT NIGHT START DATE: -JUN-2016
     Route: 065
     Dates: start: 201606
  28. CLOZARIL [Suspect]
     Active Substance: CLOZAPINE
     Dosage: 100MG IN THE MORNING, 400MG IN THE EVENING START DATE: NOV-2003
     Route: 065
     Dates: start: 200311
  29. CLOZARIL [Suspect]
     Active Substance: CLOZAPINE
     Dosage: 50MG IN THE MORNING, 250MG IN THE EVENING START DATE: -SEP-2015
     Route: 065
     Dates: start: 201509
  30. CLOZARIL [Suspect]
     Active Substance: CLOZAPINE
     Dosage: 250 MILLIGRAM, QD (250MG IN THE EVENING START DATE: -SEP-2009)
     Route: 065
     Dates: start: 200909
  31. CLOZARIL [Suspect]
     Active Substance: CLOZAPINE
     Dosage: 350 MILLIGRAM, QD (350MG IN THE EVENING START DATE: -MAY-2006)
     Route: 065
     Dates: start: 200605
  32. CLOZARIL [Suspect]
     Active Substance: CLOZAPINE
     Dosage: 200 MILLIGRAM, QD (200MG IN THE EVENING START DATE: -DEC-2010)
     Route: 065
     Dates: start: 201012
  33. CLOZARIL [Suspect]
     Active Substance: CLOZAPINE
     Dosage: 500 MILLIGRAM, QD (500MG DAILY START DATE: -2013)
     Route: 065
     Dates: start: 2013
  34. CLOZARIL [Suspect]
     Active Substance: CLOZAPINE
     Dosage: 200MG IN THE MORNING, 300MG AT NIGHT  START DATE: -JUL-2016
     Route: 065
     Dates: start: 201607
  35. CLOZARIL [Suspect]
     Active Substance: CLOZAPINE
     Dosage: 100MG IN THE MORNING, 400MG IN THE EVENING START DATE: -NOV-2004
     Route: 065
     Dates: start: 200411
  36. CLOZARIL [Suspect]
     Active Substance: CLOZAPINE
     Dosage: 400 MILLIGRAM, QD (400MG AT NIGHT)  START DATE: -JAN-2017
     Route: 065
     Dates: start: 201701
  37. CLOZARIL [Suspect]
     Active Substance: CLOZAPINE
     Dosage: 325 MILLIGRAM, QD (325MG IN THE EVENING START DATE: -JUN-2008)
     Route: 065
     Dates: start: 200806
  38. CLOZARIL [Suspect]
     Active Substance: CLOZAPINE
     Dosage: 100MG IN THE MORNING, 300MG AT NIGHT START DATE: -JUL-2014
     Route: 065
     Dates: start: 201407
  39. CLOZARIL [Suspect]
     Active Substance: CLOZAPINE
     Dosage: 375 MILLIGRAM, QD (375MG IN THE EVENING  START DATE:-MAY-2006
     Route: 065
     Dates: start: 200605
  40. CLOZARIL [Suspect]
     Active Substance: CLOZAPINE
     Dosage: 275 MILLIGRAM, QD (275MG IN THE EVENING START DATE: -NOV-2008)
     Route: 065
     Dates: start: 200811
  41. CLOZARIL [Suspect]
     Active Substance: CLOZAPINE
     Dosage: 100MG IN THE MORNING, 400MG IN THE EVENING START DATE: JUL-2003
     Route: 065
     Dates: start: 200307
  42. CLOZARIL [Suspect]
     Active Substance: CLOZAPINE
     Dosage: 100MG IN THE MORNING, 400MG IN THE EVENING START DATE:-JUL-2004
     Route: 065
     Dates: start: 200407
  43. CLOZARIL [Suspect]
     Active Substance: CLOZAPINE
     Dosage: 100MG IN THE MORNING, 400MG IN THE EVENING START DATE: -MAY-2005
     Route: 065
     Dates: start: 200505
  44. CLOZARIL [Suspect]
     Active Substance: CLOZAPINE
     Dosage: 450 MILLIGRAM, QD (450MG AT NIGHT START DATE:-2019)
     Route: 065
     Dates: start: 2019
  45. CLOZARIL [Suspect]
     Active Substance: CLOZAPINE
     Dosage: 100MG IN THE MORNING, 400MG IN THE EVENING  START DATE: NOV-2005
     Route: 065
     Dates: start: 200511
  46. CLOZARIL [Suspect]
     Active Substance: CLOZAPINE
     Dosage: UNK (START DATE: 20-JUL-2023)
     Route: 048
     Dates: start: 20230720
  47. CLOZARIL [Suspect]
     Active Substance: CLOZAPINE
     Dosage: 225 MILLIGRAM, QD (225MG IN THE EVENING START DATE: -AUG-2010)
     Route: 065
     Dates: start: 201008
  48. CLOZARIL [Suspect]
     Active Substance: CLOZAPINE
     Dosage: 200MG IN THE MORNING, 300MG AT NIGHT START DATE: -NOV-2016)
     Route: 065
     Dates: start: 201611
  49. CLOZARIL [Suspect]
     Active Substance: CLOZAPINE
     Dosage: 225 MILLIGRAM, BID (225MG TWICE DAILY START DATE: -OCT-2019)
     Route: 065
     Dates: start: 201910
  50. CLOZARIL [Suspect]
     Active Substance: CLOZAPINE
     Dosage: 100MG IN THE MORNING, 400MG IN THE EVENING START DATE: -JAN-2003
     Route: 065
     Dates: start: 200301
  51. FERROUS SULFATE [Suspect]
     Active Substance: FERROUS SULFATE
     Indication: Product used for unknown indication
     Dosage: UNK
     Route: 065
  52. FLUPENTIXOL DECANOATE [Suspect]
     Active Substance: FLUPENTIXOL DECANOATE
     Indication: Product used for unknown indication
     Dosage: 200 MILLIGRAM, QW (200MG WEEKLY START DATE:MAR-2023)
     Route: 065
     Dates: start: 202303
  53. FLUPENTIXOL DECANOATE [Suspect]
     Active Substance: FLUPENTIXOL DECANOATE
     Dosage: 400 MILLIGRAM, QW (400MG WEEKLY START DATE: AUG-2022)
     Route: 050
     Dates: start: 202208
  54. FLUPENTIXOL DECANOATE [Suspect]
     Active Substance: FLUPENTIXOL DECANOATE
     Dosage: 200 MILLIGRAM, QW (200MG WEEKLY START DATE: DEC-2022)
     Route: 065
     Dates: start: 202212
  55. HALOPERIDOL [Suspect]
     Active Substance: HALOPERIDOL
     Indication: Product used for unknown indication
     Dosage: UNK
     Route: 065
  56. LORAZEPAM [Suspect]
     Active Substance: LORAZEPAM
     Indication: Product used for unknown indication
     Dosage: 1 MILLIGRAM, BID ( (PO/IM) 1-2MG (MAX 4MG IN 24 HOURS START DATE: ??-SEP-2015)
     Route: 050
     Dates: start: 201509
  57. VALPROATE SODIUM [Suspect]
     Active Substance: VALPROATE SODIUM
     Indication: Product used for unknown indication
     Dosage: 750 MILLIGRAM, BID (750MG TWICE DAILY START DATE:MAR-2023)
     Route: 050
     Dates: start: 201605
  58. VALPROATE SODIUM [Suspect]
     Active Substance: VALPROATE SODIUM
     Dosage: 500 MILLIGRAM, BID (500MG TWICE DAILY START DATE:JUL-2016)
     Route: 050
     Dates: start: 201607
  59. VALPROATE SODIUM [Suspect]
     Active Substance: VALPROATE SODIUM
     Dosage: 750 MILLIGRAM, BID (750MG TWICE DAILY START DATE: JUN-2016)
     Route: 050
     Dates: start: 201606
  60. VALPROATE SODIUM [Suspect]
     Active Substance: VALPROATE SODIUM
     Dosage: 750 MILLIGRAM, BID (750MG TWICE DAILY START DATE:MAR-2023)
     Route: 050
     Dates: start: 202303
  61. CHOLECALCIFEROL [Concomitant]
     Active Substance: CHOLECALCIFEROL
     Indication: Product used for unknown indication
     Dosage: 800 INTERNATIONAL UNIT, QD (800 UNITS ONCE DAILY)
     Route: 065
  62. FLEXITOL HEEL [Concomitant]
     Indication: Product used for unknown indication
     Dosage: TWICE DAILY
     Route: 065
  63. FOLIC ACID\IRON\MINERALS\VITAMINS [Concomitant]
     Active Substance: FOLIC ACID\IRON\MINERALS\VITAMINS
     Indication: Product used for unknown indication
     Dosage: 1 DOSAGE FORM, QD (ONE TABLET ONCE DAILY)
     Route: 065
  64. LACTULOSE [Concomitant]
     Active Substance: LACTULOSE
     Indication: Product used for unknown indication
     Dosage: 15 MILLILITER (MAX THREE TIMES DAILY)
     Route: 065
  65. ACETAMINOPHEN [Concomitant]
     Active Substance: ACETAMINOPHEN
     Indication: Product used for unknown indication
     Dosage: 1 GRAM (MAX 4G IN 24 HOURS)
     Route: 065
  66. PROCYCLIDINE [Concomitant]
     Active Substance: PROCYCLIDINE
     Indication: Product used for unknown indication
     Dosage: 2.5 MILLIGRAM (MAX 10MG IN 24 HOURS)
     Route: 065
  67. PROMETHAZINE [Concomitant]
     Active Substance: PROMETHAZINE HYDROCHLORIDE
     Indication: Product used for unknown indication
     Dosage: 25 MILLIGRAM (MAX 100MG IN 25 HOURS)
     Route: 065
  68. THIAMINE [Concomitant]
     Active Substance: THIAMINE
     Indication: Product used for unknown indication
     Dosage: 100 MILLIGRAM, BID (100MG TWICE DAILY)
     Route: 065
  69. VITAMIN B [Concomitant]
     Active Substance: VITAMIN B
     Indication: Product used for unknown indication
     Dosage: 1 DOSAGE FORM, BID (ONE TABLET TWICE DAILY)
     Route: 065
  70. VITAMIN B COMPLEX [Concomitant]
     Active Substance: CYANOCOBALAMIN\DEXPANTHENOL\NIACINAMIDE\PYRIDOXINE HYDROCHLORIDE\RIBOFLAVIN 5^-PHOSPHATE SODIUM\THIA
     Indication: Product used for unknown indication
     Dosage: 1 DOSAGE FORM, TWO TIMES A DAY
     Route: 050

REACTIONS (33)
  - Acne [Unknown]
  - Aggression [Unknown]
  - Blood prolactin increased [Unknown]
  - Cardiac arrest [Unknown]
  - COVID-19 [Unknown]
  - Delusion [Not Recovered/Not Resolved]
  - Delusion of grandeur [Unknown]
  - Depressed mood [Unknown]
  - Dystonia [Unknown]
  - Eating disorder [Unknown]
  - Hallucination, auditory [Not Recovered/Not Resolved]
  - Insomnia [Unknown]
  - Lymphocyte count decreased [Unknown]
  - Mental impairment [Unknown]
  - Neglect of personal appearance [Unknown]
  - Neutrophil count decreased [Not Recovered/Not Resolved]
  - Orthostatic hypotension [Unknown]
  - Pneumonia aspiration [Unknown]
  - Psoriasis [Unknown]
  - Red blood cell sedimentation rate decreased [Unknown]
  - Sedation [Unknown]
  - Slow speech [Unknown]
  - Strabismus [Unknown]
  - Suicidal ideation [Unknown]
  - Thinking abnormal [Not Recovered/Not Resolved]
  - Treatment noncompliance [Unknown]
  - Vitamin D decreased [Unknown]
  - Weight decreased [Unknown]
  - Withdrawal syndrome [Unknown]
  - Accidental exposure to product [Unknown]
  - Drug ineffective [Unknown]
  - Off label use [Unknown]
  - Overdose [Unknown]

NARRATIVE: CASE EVENT DATE: 20021001
